FAERS Safety Report 22018702 (Version 2)
Quarter: 2023Q1

REPORT INFORMATION
  Report Type: Report from Study
  Country: UY (occurrence: UY)
  Receive Date: 20230222
  Receipt Date: 20230329
  Transmission Date: 20230418
  Serious: Yes (Hospitalization, Other)
  Sender: FDA-Public Use
  Company Number: UY-ABBVIE-4312626

PATIENT
  Age: 69 Year
  Sex: Male

DRUGS (1)
  1. RINVOQ [Suspect]
     Active Substance: UPADACITINIB
     Indication: Rheumatoid arthritis
     Dosage: 15 MILLIGRAM
     Route: 048
     Dates: start: 20220519

REACTIONS (8)
  - Humerus fracture [Not Recovered/Not Resolved]
  - Osteoarthritis [Unknown]
  - Weight bearing difficulty [Unknown]
  - Arthropathy [Unknown]
  - Fall [Unknown]
  - Radiculopathy [Unknown]
  - Monoparesis [Unknown]
  - CSF volume decreased [Unknown]

NARRATIVE: CASE EVENT DATE: 20230101
